FAERS Safety Report 4533192-4 (Version None)
Quarter: 2004Q4

REPORT INFORMATION
  Report Type: 
  Country: None (occurrence: None)
  Receive Date: 20041107
  Receipt Date: 20040503
  Transmission Date: 20050328
  Serious: Yes (Hospitalization)
  Sender: FDA-Public Use
  Company Number: 700326

PATIENT
  Sex: Male
  Weight: 63.5036 kg

DRUGS (5)
  1. DIANEAL [Suspect]
     Indication: PERITONEAL DIALYSIS
     Dosage: INTRAPERITONEAL
     Route: 033
  2. HOMECHOICE AUTOMATED PD SYSTEM 115 VOLT [Concomitant]
  3. CAPD TRANSFER SET [Concomitant]
  4. 15 LITER DRAINAGE BAG [Concomitant]
  5. HOMECHOICE APD SET W/CASSETTE 4 PRONG [Concomitant]

REACTIONS (1)
  - PERITONITIS [None]
